FAERS Safety Report 8232467-5 (Version None)
Quarter: 2012Q1

REPORT INFORMATION
  Report Type: 
  Country: None (occurrence: None)
  Receive Date: 20120323
  Receipt Date: 20120314
  Transmission Date: 20120608
  Serious: No
  Sender: FDA-Public Use
  Company Number: US-B.I. PHARMACEUTICALS,INC./RIDGEFIELD-2012-BP-04913BP

PATIENT
  Sex: Female

DRUGS (3)
  1. ZANTAC 75 [Suspect]
     Indication: DYSPEPSIA
     Dosage: 150 MG
     Route: 048
     Dates: start: 20120201, end: 20120314
  2. ZANTAC 75 [Suspect]
  3. VITAMIN TAB [Concomitant]
     Indication: PROPHYLAXIS
     Route: 048

REACTIONS (2)
  - APHAGIA [None]
  - DYSGEUSIA [None]
